FAERS Safety Report 6309680-7 (Version None)
Quarter: 2009Q3

REPORT INFORMATION
  Report Type: 
  Country: None (occurrence: None)
  Receive Date: 20090814
  Receipt Date: 20090812
  Transmission Date: 20100115
  Serious: Yes (Death, Hospitalization)
  Sender: FDA-Public Use
  Company Number: PHHY2009BR33927

PATIENT
  Sex: Female

DRUGS (3)
  1. ACLASTA [Suspect]
     Indication: OSTEOPOROSIS
     Dosage: ANNUALLY
     Dates: start: 20080901
  2. GINKGO BILOBA [Concomitant]
     Indication: AMNESIA
  3. AAS [Concomitant]

REACTIONS (2)
  - COMA [None]
  - DEATH [None]
